FAERS Safety Report 25705301 (Version 1)
Quarter: 2025Q3

REPORT INFORMATION
  Report Type: Spontaneous
  Country: CH (occurrence: CH)
  Receive Date: 20250820
  Receipt Date: 20250820
  Transmission Date: 20251020
  Serious: Yes (Other)
  Sender: JOHNSON AND JOHNSON
  Company Number: None

PATIENT
  Age: 72 Year
  Sex: Female
  Weight: 80 kg

DRUGS (11)
  1. TREMFYA [Suspect]
     Active Substance: GUSELKUMAB
     Indication: Spondyloarthropathy
     Route: 058
     Dates: start: 20240226
  2. TREMFYA [Suspect]
     Active Substance: GUSELKUMAB
     Dosage: NUMBER UNITS IN THE INTERVAL WAS 2
     Route: 058
     Dates: start: 20250318
  3. TREMFYA [Suspect]
     Active Substance: GUSELKUMAB
     Dosage: NUMBER UNITS IN THE INTERVAL WAS 2
     Route: 058
     Dates: start: 20250523
  4. TREMFYA [Suspect]
     Active Substance: GUSELKUMAB
     Dosage: NUMBER UNITS IN THE INTERVAL WAS 2
     Route: 058
     Dates: start: 20250724
  5. ARCOXIA [Concomitant]
     Active Substance: ETORICOXIB
     Indication: Product used for unknown indication
     Route: 048
     Dates: start: 20240802
  6. PANTOPRAZOLE SODIUM [Concomitant]
     Active Substance: PANTOPRAZOLE SODIUM
     Indication: Product used for unknown indication
     Route: 048
     Dates: start: 20240625
  7. MAGNESIUM ASPARTATE HYDROCHLORIDE [Concomitant]
     Active Substance: MAGNESIUM ASPARTATE HYDROCHLORIDE
     Indication: Product used for unknown indication
     Route: 048
     Dates: start: 20240415
  8. CALCIUM\CHOLECALCIFEROL [Concomitant]
     Active Substance: CALCIUM\CHOLECALCIFEROL
     Indication: Product used for unknown indication
     Route: 048
     Dates: start: 20240401
  9. CETIRIZINE [Concomitant]
     Active Substance: CETIRIZINE HYDROCHLORIDE
     Indication: Premedication
  10. PREDNISOLONE [Concomitant]
     Active Substance: PREDNISOLONE
     Indication: Premedication
  11. DIMETHINDENE [Concomitant]
     Active Substance: DIMETHINDENE
     Indication: Premedication

REACTIONS (3)
  - Urinary retention [Recovered/Resolved]
  - Injection site hypersensitivity [Recovered/Resolved]
  - Constipation [Recovered/Resolved]

NARRATIVE: CASE EVENT DATE: 20250318
